FAERS Safety Report 21547573 (Version 1)
Quarter: 2022Q4

REPORT INFORMATION
  Report Type: Report from Study
  Country: US (occurrence: US)
  Receive Date: 20221103
  Receipt Date: 20221103
  Transmission Date: 20230113
  Serious: No
  Sender: FDA-Public Use
  Company Number: US-ABBVIE-22K-163-4474623-00

PATIENT
  Age: 67 Year
  Sex: Female

DRUGS (4)
  1. SKYRIZI [Suspect]
     Active Substance: RISANKIZUMAB-RZAA
     Indication: Psoriasis
     Dosage: STRENGTH 150 MG
     Route: 058
  2. PFIZER-BIONTECH COVID-19 VACCINE [Concomitant]
     Active Substance: TOZINAMERAN
     Indication: COVID-19 immunisation
     Dosage: TIME INTERVAL: 1 TOTAL: 1 IN ONCE
     Route: 030
  3. ADVIL [Concomitant]
     Active Substance: IBUPROFEN
     Indication: Pain
  4. HYDROCODONE [Concomitant]
     Active Substance: HYDROCODONE
     Indication: Pain

REACTIONS (2)
  - Limb injury [Unknown]
  - Wound [Recovering/Resolving]

NARRATIVE: CASE EVENT DATE: 20220601
